FAERS Safety Report 13593323 (Version 1)
Quarter: 2017Q2

REPORT INFORMATION
  Report Type: Spontaneous
  Country: GB (occurrence: GB)
  Receive Date: 20170530
  Receipt Date: 20170530
  Transmission Date: 20170830
  Serious: Yes (Hospitalization, Other)
  Sender: FDA-Public Use
  Company Number: GB-JUBILANT CADISTA PHARMACEUTICALS-2017JUB00155

PATIENT
  Age: 73 Year
  Sex: Female

DRUGS (2)
  1. UNSPECIFIED STEROIDS [Suspect]
     Active Substance: UNSPECIFIED INGREDIENT
     Route: 065
  2. ALENDRONATE [Suspect]
     Active Substance: ALENDRONATE SODIUM
     Route: 065

REACTIONS (2)
  - Atypical femur fracture [Recovered/Resolved]
  - Device breakage [Recovered/Resolved]
